FAERS Safety Report 9655540 (Version 1)
Quarter: 2013Q4

REPORT INFORMATION
  Report Type: Spontaneous
  Country: US (occurrence: US)
  Receive Date: 20131029
  Receipt Date: 20131029
  Transmission Date: 20140711
  Serious: Yes (Disabling, Other)
  Sender: FDA-Public Use
  Company Number: US-ELI_LILLY_AND_COMPANY-US201310006176

PATIENT
  Age: 61 Year
  Sex: Female

DRUGS (1)
  1. FORTEO [Suspect]
     Indication: OSTEOPOROSIS
     Dosage: UNK
     Route: 065

REACTIONS (8)
  - Asthenia [Not Recovered/Not Resolved]
  - Myopathy [Unknown]
  - Neuropathy peripheral [Unknown]
  - Spinal osteoarthritis [Unknown]
  - Spinal column stenosis [Unknown]
  - Dysphagia [Unknown]
  - Speech disorder [Unknown]
  - Muscular weakness [Unknown]
